FAERS Safety Report 17449423 (Version 1)
Quarter: 2020Q1

REPORT INFORMATION
  Report Type: Spontaneous
  Country: JP (occurrence: JP)
  Receive Date: 20200224
  Receipt Date: 20200224
  Transmission Date: 20200409
  Serious: Yes (Hospitalization)
  Sender: FDA-Public Use
  Company Number: JP-009507513-2002JPN008693

PATIENT
  Age: 35 Year
  Sex: Male

DRUGS (15)
  1. MONTELUKAST SODIUM. [Suspect]
     Active Substance: MONTELUKAST SODIUM
     Dosage: DAILY DOSE: 10 MG
     Route: 048
     Dates: start: 201810, end: 201811
  2. CLARITHROMYCIN SAWAI [Concomitant]
     Route: 048
  3. LOXOPROFEN SODIUM TOWA [Concomitant]
     Route: 048
  4. XYZAL [Concomitant]
     Active Substance: LEVOCETIRIZINE DIHYDROCHLORIDE
     Route: 048
  5. GENINAX [Concomitant]
     Active Substance: GARENOXACIN MESYLATE
     Route: 048
  6. CARBOCISTEINE SAWAI [Concomitant]
     Route: 048
  7. REBAMIPIDE [Concomitant]
     Active Substance: REBAMIPIDE
     Route: 048
  8. TRANSAMIN [Concomitant]
     Active Substance: TRANEXAMIC ACID
     Route: 048
  9. REBAMIPIDE TOWA [Concomitant]
     Active Substance: REBAMIPIDE
     Route: 048
  10. TRANEXAMIC ACID YD [Concomitant]
     Route: 048
  11. DELLEGRA [Concomitant]
     Active Substance: FEXOFENADINE HYDROCHLORIDE\PSEUDOEPHEDRINE HYDROCHLORIDE
     Route: 048
  12. LOXONIN [Concomitant]
     Active Substance: LOXOPROFEN SODIUM
     Route: 048
  13. MEDICON (DEXTROMETHORPHAN HYDROBROMIDE) [Concomitant]
     Active Substance: DEXTROMETHORPHAN HYDROBROMIDE
     Route: 048
  14. CARBOCISTEINE TOWA [Concomitant]
     Route: 048
  15. CEFDITOREN PIVOXIL TOWA [Concomitant]
     Route: 048

REACTIONS (1)
  - Drug eruption [Unknown]

NARRATIVE: CASE EVENT DATE: 2018
